FAERS Safety Report 5271208-0 (Version None)
Quarter: 2007Q1

REPORT INFORMATION
  Report Type: 
  Country: None (occurrence: None)
  Receive Date: 20070321
  Receipt Date: 20070314
  Transmission Date: 20070707
  Serious: Yes (Disabling)
  Sender: FDA-Public Use
  Company Number: US-MERCK-0701USA04016

PATIENT
  Age: 63 Year
  Sex: Male
  Weight: 84 kg

DRUGS (5)
  1. PROSCAR [Suspect]
     Indication: BENIGN PROSTATIC HYPERPLASIA
     Route: 048
  2. PROSCAR [Suspect]
     Route: 048
     Dates: start: 20061217
  3. PROSCAR [Suspect]
     Indication: PROSTATE EXAMINATION ABNORMAL
     Route: 048
  4. PROSCAR [Suspect]
     Route: 048
     Dates: start: 20061217
  5. FLOMAX [Concomitant]
     Route: 065
     Dates: start: 20040101

REACTIONS (8)
  - CHEST DISCOMFORT [None]
  - CHEST PAIN [None]
  - DRUG ADMINISTRATION ERROR [None]
  - ERECTILE DYSFUNCTION [None]
  - LIBIDO DECREASED [None]
  - SUPRAVENTRICULAR EXTRASYSTOLES [None]
  - VENTRICULAR EXTRASYSTOLES [None]
  - VENTRICULAR TACHYCARDIA [None]
